FAERS Safety Report 14111864 (Version 1)
Quarter: 2017Q4

REPORT INFORMATION
  Report Type: Spontaneous
  Country: FR (occurrence: FR)
  Receive Date: 20171020
  Receipt Date: 20171020
  Transmission Date: 20180321
  Serious: Yes (Hospitalization)
  Sender: FDA-Public Use
  Company Number: FR-MERCK KGAA-2030972

PATIENT
  Age: 84 Year
  Sex: Female

DRUGS (11)
  1. NOVOTHYROX [Suspect]
     Active Substance: LEVOTHYROXINE SODIUM
     Indication: HYPOTHYROIDISM
     Route: 048
  2. TIENAM (PRIMAXIN) [Concomitant]
     Active Substance: CILASTATIN SODIUM\IMIPENEM
     Dates: start: 20170811, end: 20170831
  3. MIANSERINE [Suspect]
     Active Substance: MIANSERIN HYDROCHLORIDE
     Route: 048
     Dates: end: 20170831
  4. LANSOPRAZOLE. [Concomitant]
     Active Substance: LANSOPRAZOLE
     Dates: start: 20170906, end: 20170909
  5. FUROSEMIDE. [Suspect]
     Active Substance: FUROSEMIDE
     Route: 048
     Dates: end: 20170912
  6. FURADANTIN [Concomitant]
     Active Substance: NITROFURANTOIN
     Dates: start: 201707, end: 20170809
  7. BISOPROLOL [Suspect]
     Active Substance: BISOPROLOL
     Route: 048
  8. SIMVASTATIN. [Suspect]
     Active Substance: SIMVASTATIN
     Route: 048
  9. KARDEGIC [Suspect]
     Active Substance: ASPIRIN DL-LYSINE
     Route: 048
  10. TARGOCID [Suspect]
     Active Substance: TEICOPLANIN
     Route: 042
     Dates: start: 20170813, end: 20170821
  11. CEFTRIAXONE. [Concomitant]
     Active Substance: CEFTRIAXONE
     Dates: start: 20170727, end: 20170809

REACTIONS (1)
  - Eczema [Recovered/Resolved]

NARRATIVE: CASE EVENT DATE: 20170906
